FAERS Safety Report 12304884 (Version 2)
Quarter: 2016Q2

REPORT INFORMATION
  Report Type: Spontaneous
  Country: US (occurrence: US)
  Receive Date: 20160426
  Receipt Date: 20160517
  Transmission Date: 20160815
  Serious: No
  Sender: FDA-Public Use
  Company Number: US-PFIZER INC-2016221669

PATIENT
  Sex: Female

DRUGS (1)
  1. LYRICA [Suspect]
     Active Substance: PREGABALIN
     Dosage: UNK
     Dates: start: 20160417

REACTIONS (6)
  - Anxiety [Unknown]
  - Swelling [Unknown]
  - Swelling face [Unknown]
  - Paraesthesia [Unknown]
  - Dizziness [Unknown]
  - Peripheral swelling [Unknown]
